FAERS Safety Report 7480356-6 (Version None)
Quarter: 2011Q2

REPORT INFORMATION
  Report Type: 
  Country: None (occurrence: None)
  Receive Date: 20110512
  Receipt Date: 20110512
  Transmission Date: 20111010
  Serious: Yes (Hospitalization)
  Sender: FDA-Public Use
  Company Number: None

PATIENT
  Sex: Male
  Weight: 78.8 kg

DRUGS (6)
  1. PEG-L-ASPARAGINASE (K-H) [Suspect]
     Dosage: 4875 MG
  2. CYTARABINE [Suspect]
     Dosage: 146 MG
  3. VINCRISTINE SULFATE [Suspect]
     Dosage: 2 MG
  4. MERCAPTOPURINE [Suspect]
     Dosage: 117 MG
  5. CYCLOPHOSPHAMIDE [Suspect]
     Dosage: 1950 MG
  6. METHOTREXATE [Suspect]
     Dosage: 15 MG

REACTIONS (1)
  - ORTHOSTATIC HYPOTENSION [None]
